FAERS Safety Report 20057874 (Version 2)
Quarter: 2022Q1

REPORT INFORMATION
  Report Type: Report from Study
  Country: CA (occurrence: CA)
  Receive Date: 20211111
  Receipt Date: 20220120
  Transmission Date: 20220424
  Serious: Yes (Death)
  Sender: FDA-Public Use
  Company Number: CA-KARYOPHARM-2021KPT001129

PATIENT
  Age: 76 Year
  Sex: Male

DRUGS (4)
  1. SELINEXOR [Suspect]
     Active Substance: SELINEXOR
     Indication: Plasma cell myeloma
     Dosage: UNK UNK, WEEKLY
     Route: 048
     Dates: start: 20210428
  2. SELINEXOR [Suspect]
     Active Substance: SELINEXOR
     Dosage: 20 MG, WEEKLY
     Route: 048
     Dates: start: 20210428
  3. BORTEZOMIB [Concomitant]
     Active Substance: BORTEZOMIB
     Indication: Plasma cell myeloma
  4. DEXAMETHASONE [Concomitant]
     Active Substance: DEXAMETHASONE
     Indication: Plasma cell myeloma

REACTIONS (4)
  - Death [Fatal]
  - Abdominal distension [Unknown]
  - Nausea [Unknown]
  - Vomiting [Unknown]

NARRATIVE: CASE EVENT DATE: 20211201
